FAERS Safety Report 25808173 (Version 2)
Quarter: 2025Q4

REPORT INFORMATION
  Report Type: Spontaneous
  Country: JP (occurrence: JP)
  Receive Date: 20250916
  Receipt Date: 20251006
  Transmission Date: 20260117
  Serious: No
  Sender: DAIICHI
  Company Number: JP-DSJP-DS-2025-164548-JP

PATIENT
  Age: 100 Year
  Sex: Female

DRUGS (1)
  1. EDOXABAN TOSYLATE [Suspect]
     Active Substance: EDOXABAN TOSYLATE
     Indication: Atrial fibrillation
     Dosage: 15 MG
     Route: 048

REACTIONS (1)
  - Creatinine renal clearance decreased [Recovered/Resolved]
